FAERS Safety Report 10098550 (Version 1)
Quarter: 2014Q2

REPORT INFORMATION
  Report Type: Spontaneous
  Country: FR (occurrence: FR)
  Receive Date: 20140423
  Receipt Date: 20140423
  Transmission Date: 20141212
  Serious: Yes (Other)
  Sender: FDA-Public Use
  Company Number: FR-ASTRAZENECA-2014SE26160

PATIENT
  Age: 60 Year
  Sex: Female

DRUGS (1)
  1. FASLODEX [Suspect]
     Indication: BREAST CANCER METASTATIC
     Route: 030
     Dates: start: 201010, end: 201203

REACTIONS (3)
  - Weight increased [Recovered/Resolved]
  - Injection site pain [Recovered/Resolved]
  - Off label use [Recovered/Resolved]
